FAERS Safety Report 9135524 (Version 1)
Quarter: 2013Q1

REPORT INFORMATION
  Report Type: Spontaneous
  Country: US (occurrence: US)
  Receive Date: 20130304
  Receipt Date: 20130304
  Transmission Date: 20140127
  Serious: No
  Sender: FDA-Public Use
  Company Number: US-009507513-1303USA000936

PATIENT
  Age: 30 Year
  Sex: Female

DRUGS (2)
  1. AFRIN [Suspect]
     Indication: PRODUCT USED FOR UNKNOWN INDICATION
     Dosage: UNK, ONCE
     Route: 045
  2. SUDAFED [Concomitant]
     Indication: RESPIRATORY TRACT CONGESTION
     Dosage: UNK, UNKNOWN

REACTIONS (3)
  - Headache [Unknown]
  - Feeling cold [Unknown]
  - Accidental exposure to product [Unknown]
